FAERS Safety Report 6370977-6 (Version None)
Quarter: 2009Q3

REPORT INFORMATION
  Report Type: 
  Country: None (occurrence: None)
  Receive Date: 20090923
  Receipt Date: 20090914
  Transmission Date: 20100115
  Serious: Yes (Other)
  Sender: FDA-Public Use
  Company Number: PL-ABBOTT-09P-129-0595393-00

PATIENT
  Age: 17 Year
  Sex: Female

DRUGS (9)
  1. CYCLOSPORINE [Suspect]
     Indication: IMMUNOSUPPRESSANT DRUG THERAPY
     Dosage: IN TWO DOSES
     Route: 048
     Dates: start: 20060201
  2. CYCLOSPORINE [Suspect]
     Dosage: IN TWO DOSES
     Route: 048
     Dates: start: 20061101
  3. ETHYLENOESTRADIOL WITH LEVONORGESTREL [Suspect]
     Indication: HORMONE THERAPY
     Dosage: NOT REPORTED
  4. ANTI-THYMOCYTE GLOBULIN NOS [Concomitant]
     Indication: IMMUNOSUPPRESSANT DRUG THERAPY
     Route: 042
     Dates: start: 20060201
  5. METHYLPREDNISOLONE 4MG TAB [Concomitant]
     Indication: IMMUNOSUPPRESSANT DRUG THERAPY
     Dosage: 2, 1, 0.5 MG/KG B.W.
     Route: 042
     Dates: start: 20060201
  6. METHYLPREDNISOLONE 4MG TAB [Concomitant]
     Dosage: NOT REPORTED
     Dates: start: 20061101
  7. G-CSF-NEULASTA-PEGFILGRASTIM [Concomitant]
     Indication: IMMUNOSUPPRESSANT DRUG THERAPY
     Dosage: IV OR SUBCUTANEOUS
     Dates: start: 20060201
  8. HORSE STG [Concomitant]
     Indication: IMMUNOSUPPRESSANT DRUG THERAPY
     Route: 042
     Dates: start: 20061101
  9. NEUPOGEN [Concomitant]
     Indication: IMMUNOSUPPRESSANT DRUG THERAPY
     Dosage: NOT REPORTED
     Dates: start: 20061101

REACTIONS (4)
  - ACNE [None]
  - FIBROADENOMA OF BREAST [None]
  - GINGIVAL HYPERPLASIA [None]
  - HIRSUTISM [None]
